FAERS Safety Report 5842431-9 (Version None)
Quarter: 2008Q3

REPORT INFORMATION
  Report Type: 
  Country: None (occurrence: None)
  Receive Date: 20080808
  Receipt Date: 20080729
  Transmission Date: 20090109
  Serious: Yes (Hospitalization)
  Sender: FDA-Public Use
  Company Number: 2008BI006615

PATIENT
  Age: 65 Year
  Sex: Female
  Weight: 58.514 kg

DRUGS (2)
  1. AVONEX [Suspect]
     Indication: MULTIPLE SCLEROSIS
     Dosage: 30 UG; QW; IM, 30 UG; QW; IM
     Route: 030
     Dates: start: 19990101, end: 20030101
  2. AVONEX [Suspect]
     Indication: MULTIPLE SCLEROSIS
     Dosage: 30 UG; QW; IM, 30 UG; QW; IM
     Route: 030
     Dates: start: 20030101

REACTIONS (9)
  - ABASIA [None]
  - ARTHRALGIA [None]
  - FALL [None]
  - FATIGUE [None]
  - HYPERTENSION [None]
  - LOWER LIMB FRACTURE [None]
  - PAIN [None]
  - SCREAMING [None]
  - TRAUMATIC ARTHRITIS [None]
